FAERS Safety Report 13583354 (Version 2)
Quarter: 2020Q3

REPORT INFORMATION
  Report Type: Spontaneous
  Country: FR (occurrence: FR)
  Receive Date: 20170525
  Receipt Date: 20200930
  Transmission Date: 20201102
  Serious: Yes (Life-Threatening, Hospitalization, Other)
  Sender: FDA-Public Use
  Company Number: FR-BRISTOL-MYERS SQUIBB COMPANY-BMS-2017-043586

PATIENT
  Age: 26 Year
  Sex: Female
  Weight: 50 kg

DRUGS (5)
  1. KENACORT [Suspect]
     Active Substance: TRIAMCINOLONE
     Indication: PAIN IN EXTREMITY
     Dosage: UNK
     Route: 014
     Dates: end: 20170113
  2. TRAMADOL HYDROCHLORIDE. [Concomitant]
     Active Substance: TRAMADOL HYDROCHLORIDE
     Indication: PAIN
     Dosage: UNK
     Route: 048
     Dates: start: 20170115
  3. PARACETAMOL [Concomitant]
     Active Substance: ACETAMINOPHEN
     Indication: PAIN
     Dosage: UNK
     Route: 048
     Dates: start: 20170115
  4. KENACORT [Suspect]
     Active Substance: TRIAMCINOLONE
     Indication: PAIN IN EXTREMITY
     Dosage: 1 DOSAGE FORM, QD
     Route: 014
     Dates: end: 20170113
  5. OFLOCET [OFLOXACIN HYDROCHLORIDE] [Concomitant]
     Active Substance: OFLOXACIN
     Indication: INFECTION
     Dosage: UNK
     Route: 048
     Dates: start: 20170115

REACTIONS (5)
  - Disseminated intravascular coagulation [Unknown]
  - Necrotising fasciitis [Recovered/Resolved with Sequelae]
  - Septic shock [Recovered/Resolved with Sequelae]
  - Acute kidney injury [Unknown]
  - Exeresis [Unknown]

NARRATIVE: CASE EVENT DATE: 20170116
